FAERS Safety Report 25168211 (Version 1)
Quarter: 2025Q2

REPORT INFORMATION
  Report Type: Other
  Country: AU (occurrence: AU)
  Receive Date: 20250407
  Receipt Date: 20250407
  Transmission Date: 20250716
  Serious: No
  Sender: TOLMAR
  Company Number: AU-TOLMAR, INC.-25AU058071

PATIENT
  Age: 73 Year
  Sex: Male

DRUGS (4)
  1. ELIGARD [Suspect]
     Active Substance: LEUPROLIDE ACETATE
     Indication: Prostate cancer
  2. ELIGARD [Suspect]
     Active Substance: LEUPROLIDE ACETATE
     Indication: Prostate cancer
  3. RADIATION THERAPY [Suspect]
     Active Substance: RADIATION THERAPY
     Indication: Product used for unknown indication
  4. DAROLUTAMIDE [Concomitant]
     Active Substance: DAROLUTAMIDE
     Indication: Product used for unknown indication

REACTIONS (3)
  - Fatigue [Unknown]
  - Back pain [Unknown]
  - Hot flush [Unknown]

NARRATIVE: CASE EVENT DATE: 20250301
